FAERS Safety Report 10737208 (Version 1)
Quarter: 2015Q1

REPORT INFORMATION
  Report Type: Spontaneous
  Country: MX (occurrence: None)
  Receive Date: 20150122
  Receipt Date: 20150122
  Transmission Date: 20150721
  Serious: Yes (Hospitalization)
  Sender: FDA-Public Use
  Company Number: ABR_01946_2015

PATIENT
  Age: 54 Year
  Sex: Male

DRUGS (1)
  1. EDARBYCLOR [Suspect]
     Active Substance: AZILSARTAN KAMEDOXOMIL\CHLORTHALIDONE
     Indication: HYPERTENSION
     Dates: start: 201406

REACTIONS (1)
  - Haemodialysis [None]

NARRATIVE: CASE EVENT DATE: 2014
